FAERS Safety Report 15780281 (Version 1)
Quarter: 2019Q1

REPORT INFORMATION
  Report Type: Spontaneous
  Country: US (occurrence: US)
  Receive Date: 20190102
  Receipt Date: 20190102
  Transmission Date: 20190417
  Serious: No
  Sender: FDA-Public Use
  Company Number: US-IPSEN BIOPHARMACEUTICALS, INC.-2018-19993

PATIENT
  Sex: Female
  Weight: 16.3 kg

DRUGS (2)
  1. INCRELEX [Suspect]
     Active Substance: MECASERMIN
     Indication: OFF LABEL USE
  2. INCRELEX [Suspect]
     Active Substance: MECASERMIN
     Indication: HYPOPITUITARISM

REACTIONS (4)
  - Product dose omission [Unknown]
  - Off label use [Unknown]
  - Pyrexia [Unknown]
  - Ear infection [Unknown]
